FAERS Safety Report 15292767 (Version 1)
Quarter: 2018Q3

REPORT INFORMATION
  Report Type: Spontaneous
  Country: US (occurrence: US)
  Receive Date: 20180819
  Receipt Date: 20180819
  Transmission Date: 20181010
  Serious: Yes (Other)
  Sender: FDA-Public Use
  Company Number: US-SHIRE-US201831281

PATIENT
  Age: 43 Year
  Sex: Male

DRUGS (1)
  1. GAMMAGARD LIQUID [Suspect]
     Active Substance: HUMAN IMMUNOGLOBULIN G
     Indication: CHRONIC INFLAMMATORY DEMYELINATING POLYRADICULONEUROPATHY
     Dosage: 400 MG/KG, 1X A MONTH
     Route: 042
     Dates: start: 2014

REACTIONS (3)
  - Therapeutic response unexpected [Unknown]
  - Hair growth rate abnormal [Unknown]
  - Haemolytic anaemia [Unknown]
